FAERS Safety Report 10445611 (Version 1)
Quarter: 2014Q3

REPORT INFORMATION
  Report Type: Spontaneous
  Country: US (occurrence: US)
  Receive Date: 20140908
  Receipt Date: 20140908
  Transmission Date: 20150326
  Serious: No
  Sender: FDA-Public Use
  Company Number: US-BRISTOL-MYERS SQUIBB COMPANY-20745626

PATIENT
  Age: 55 Year
  Sex: Female
  Weight: 88.43 kg

DRUGS (7)
  1. ESTRADIOL. [Concomitant]
     Active Substance: ESTRADIOL
     Indication: MENOPAUSE
  2. VISTARIL [Concomitant]
     Active Substance: HYDROXYZINE PAMOATE
  3. METOPROLOL [Concomitant]
     Active Substance: METOPROLOL
  4. ABILIFY [Suspect]
     Active Substance: ARIPIPRAZOLE
     Dosage: RESTARTED
  5. CYMBALTA [Concomitant]
     Active Substance: DULOXETINE HYDROCHLORIDE
  6. HYDROXYZINE [Concomitant]
     Active Substance: HYDROXYZINE\HYDROXYZINE HYDROCHLORIDE
  7. VICODIN [Concomitant]
     Active Substance: ACETAMINOPHEN\HYDROCODONE BITARTRATE

REACTIONS (3)
  - Visual impairment [Unknown]
  - Anxiety [Unknown]
  - Drug dose omission [Unknown]
